FAERS Safety Report 8923156 (Version 1)
Quarter: 2012Q4

REPORT INFORMATION
  Report Type: 
  Country: US (occurrence: US)
  Receive Date: 20121124
  Receipt Date: 20121124
  Transmission Date: 20130627
  Serious: No
  Sender: FDA-Public Use
  Company Number: PHEH2012US023008

PATIENT
  Sex: Female

DRUGS (4)
  1. TASIGNA [Suspect]
     Indication: CHRONIC MYELOID LEUKAEMIA
     Dosage: 250 mg, BID
     Route: 048
     Dates: start: 20121106
  2. IBUPROFEN [Concomitant]
  3. PRILOSEC [Concomitant]
  4. MULTI-VIT [Concomitant]

REACTIONS (1)
  - Dyspepsia [Unknown]
